FAERS Safety Report 4389529-2 (Version None)
Quarter: 2004Q2

REPORT INFORMATION
  Report Type: 
  Country: None (occurrence: None)
  Receive Date: 20040628
  Receipt Date: 20040616
  Transmission Date: 20050107
  Serious: Yes (Other)
  Sender: FDA-Public Use
  Company Number: GB-JNJFOC-20040604066

PATIENT
  Age: 15 Year
  Sex: Female

DRUGS (3)
  1. RISPERDAL [Suspect]
     Indication: DRUG USE FOR UNKNOWN INDICATION
     Dosage: 1 MG, IN 1 DAY
  2. TOPIRAMATE [Concomitant]
  3. CONCERTA [Concomitant]

REACTIONS (1)
  - EYE MOVEMENT DISORDER [None]
